FAERS Safety Report 4346408-4 (Version None)
Quarter: 2004Q1

REPORT INFORMATION
  Report Type: 
  Country: None (occurrence: None)
  Receive Date: 20040325
  Receipt Date: 20031230
  Transmission Date: 20041129
  Serious: No
  Sender: FDA-Public Use
  Company Number: USA031253887

PATIENT
  Age: 64 Year
  Sex: Female

DRUGS (18)
  1. FORTEO [Suspect]
     Indication: OSTEOPENIA
     Dosage: 20 UG/DAY
     Dates: start: 20031203
  2. FORTEO [Suspect]
     Indication: OSTEOPOROSIS
     Dosage: 20 UG/DAY
     Dates: start: 20031203
  3. ADVAIR DISKUS 100/50 [Concomitant]
  4. FLOVENT [Concomitant]
  5. TEQUIN [Concomitant]
  6. EFFEXOR [Concomitant]
  7. MULTIVITAMIN [Concomitant]
  8. ACCOLATE [Concomitant]
  9. PREOVENTIL (SALBUTAMOL) [Concomitant]
  10. ATROVENT [Concomitant]
  11. ENTEX CAP [Concomitant]
  12. COMBIVENT [Concomitant]
  13. VALIUM [Concomitant]
  14. VALTREX (VALCICLOVIR HYDROCHLORIDE) [Concomitant]
  15. VOLMAX [Concomitant]
  16. OXYGEN [Concomitant]
  17. MIACACLIN (CALCITONIN, SALMON) [Concomitant]
  18. ACTONEL [Concomitant]

REACTIONS (15)
  - ABDOMINAL PAIN LOWER [None]
  - ARTHRALGIA [None]
  - ASTHENIA [None]
  - ASTHMA [None]
  - CHILLS [None]
  - DIZZINESS [None]
  - DYSPNOEA [None]
  - FATIGUE [None]
  - FEAR [None]
  - INFLUENZA [None]
  - MUSCLE CRAMP [None]
  - NAUSEA [None]
  - NERVOUSNESS [None]
  - RESPIRATORY TRACT CONGESTION [None]
  - SOMNOLENCE [None]
